FAERS Safety Report 15205751 (Version 2)
Quarter: 2018Q3

REPORT INFORMATION
  Report Type: Spontaneous
  Country: US (occurrence: US)
  Receive Date: 20180727
  Receipt Date: 20180809
  Transmission Date: 20181010
  Serious: No
  Sender: FDA-Public Use
  Company Number: US-SHIRE-US201827431

PATIENT
  Age: 67 Year
  Sex: Male
  Weight: 81.6 kg

DRUGS (2)
  1. GATTEX [Suspect]
     Active Substance: TEDUGLUTIDE\WATER
     Indication: PRODUCT USED FOR UNKNOWN INDICATION
     Dosage: 0.408, 1X/DAY:QD
     Route: 065
     Dates: start: 20180211
  2. GATTEX [Suspect]
     Active Substance: TEDUGLUTIDE\WATER
     Dosage: 0.41 ML, 1X/DAY:QD
     Route: 058
     Dates: start: 20180330

REACTIONS (3)
  - Injection site erythema [Not Recovered/Not Resolved]
  - Peripheral swelling [Unknown]
  - Injection site swelling [Not Recovered/Not Resolved]

NARRATIVE: CASE EVENT DATE: 20180717
